FAERS Safety Report 20639575 (Version 2)
Quarter: 2022Q3

REPORT INFORMATION
  Report Type: Spontaneous
  Country: US (occurrence: US)
  Receive Date: 20220326
  Receipt Date: 20220714
  Transmission Date: 20221026
  Serious: No
  Sender: FDA-Public Use
  Company Number: US-SANOFI-01017141

PATIENT

DRUGS (6)
  1. TOUJEO [Suspect]
     Active Substance: INSULIN GLARGINE
  2. SOLIQUA 100/33 [Suspect]
     Active Substance: INSULIN GLARGINE\LIXISENATIDE
  3. LANTUS [Suspect]
     Active Substance: INSULIN GLARGINE
  4. ADMELOG [Suspect]
     Active Substance: INSULIN LISPRO
  5. TOUJEO MAX [Suspect]
     Active Substance: INSULIN GLARGINE
  6. LANTUS SOLOSTAR [Suspect]
     Active Substance: INSULIN GLARGINE

REACTIONS (1)
  - Product storage error [Unknown]
